FAERS Safety Report 15611529 (Version 1)
Quarter: 2018Q4

REPORT INFORMATION
  Report Type: Spontaneous
  Country: PT (occurrence: PT)
  Receive Date: 20181113
  Receipt Date: 20181113
  Transmission Date: 20190205
  Serious: Yes (Other)
  Sender: FDA-Public Use
  Company Number: PT-AUROBINDO-AUR-APL-2018-054936

PATIENT
  Sex: Female

DRUGS (6)
  1. IRESSA [Suspect]
     Active Substance: GEFITINIB
     Indication: LUNG ADENOCARCINOMA
     Dosage: VALIDADE: 30-09-2017. O F?RMACO N?O FOI SUSPENSO, DESCONHECE-SE SE POSOLOGIA FOI ALTERADA.
     Route: 048
     Dates: start: 20150210
  2. OCULOTECT                          /06838601/ [Concomitant]
     Indication: MACULAR DEGENERATION
     Dosage: UNK
     Route: 047
  3. ATACAND [Concomitant]
     Active Substance: CANDESARTAN CILEXETIL
     Indication: HYPERTENSION
     Dosage: N?O SE SABE SE A DOENTE MANT?M A TERAP?UTICA.
     Route: 048
     Dates: start: 2012
  4. CAPECITABINE. [Suspect]
     Active Substance: CAPECITABINE
     Indication: LUNG ADENOCARCINOMA
     Dosage: UNK
     Route: 065
  5. OMEPRAZOLE. [Concomitant]
     Active Substance: OMEPRAZOLE
     Indication: PRODUCT USED FOR UNKNOWN INDICATION
     Dosage: 1 DOSAGE FORM, ONCE A DAY
     Route: 048
  6. VIARTRIL                           /00362101/ [Concomitant]
     Indication: OSTEOARTHRITIS
     Dosage: 1 DOSAGE FORM, ONCE A DAY
     Route: 048
     Dates: start: 2012

REACTIONS (10)
  - Corneal erosion [Recovered/Resolved]
  - Pyogenic granuloma [Recovered/Resolved]
  - Alopecia [Recovered/Resolved]
  - Nail disorder [Not Recovered/Not Resolved]
  - Hair growth abnormal [Recovered/Resolved]
  - Paronychia [Recovered/Resolved]
  - Dry eye [Recovered/Resolved]
  - Gingival bleeding [Recovered/Resolved]
  - Dry mouth [Recovered/Resolved]
  - Growth of eyelashes [Recovered/Resolved]

NARRATIVE: CASE EVENT DATE: 2015
